FAERS Safety Report 5266839-8 (Version None)
Quarter: 2007Q1

REPORT INFORMATION
  Report Type: 
  Country: None (occurrence: None)
  Receive Date: 20061213
  Receipt Date: 20040908
  Transmission Date: 20070707
  Serious: No
  Sender: FDA-Public Use
  Company Number: 2004UW18701

PATIENT

DRUGS (2)
  1. TAMOXIFEN CITRATE [Suspect]
     Indication: MALIGNANT MELANOMA
  2. DTIC-DOME [Suspect]
     Indication: MALIGNANT MELANOMA

REACTIONS (1)
  - DISEASE RECURRENCE [None]
